FAERS Safety Report 6071892-8 (Version None)
Quarter: 2009Q1

REPORT INFORMATION
  Report Type: 
  Country: None (occurrence: None)
  Receive Date: 20090210
  Receipt Date: 20090206
  Transmission Date: 20090719
  Serious: Yes (Other)
  Sender: FDA-Public Use
  Company Number: US-BAYER-200910341BCC

PATIENT
  Age: 89 Year
  Sex: Male

DRUGS (4)
  1. ASPIRIN [Suspect]
     Indication: DRUG USE FOR UNKNOWN INDICATION
     Dosage: TOTAL DAILY DOSE: 325 MG  UNIT DOSE: 325 MG
     Dates: start: 19990101
  2. HIGH BLOOD PRESSURE MEDICATION [Concomitant]
  3. CHOLESTEROL MEDICATION [Concomitant]
  4. DIABETES MEDICATION [Concomitant]

REACTIONS (1)
  - DEAFNESS [None]
